FAERS Safety Report 20106399 (Version 1)
Quarter: 2021Q4

REPORT INFORMATION
  Report Type: Spontaneous
  Country: CN (occurrence: None)
  Receive Date: 20211124
  Receipt Date: 20211124
  Transmission Date: 20220303
  Serious: Yes (Other)
  Sender: FDA-Public Use
  Company Number: CN-ROCHE-2958460

PATIENT
  Age: 45 Year
  Sex: Male
  Weight: 81 kg

DRUGS (8)
  1. CAPECITABINE [Suspect]
     Active Substance: CAPECITABINE
     Indication: Colon cancer
     Route: 048
     Dates: start: 20210226
  2. CAPECITABINE [Suspect]
     Active Substance: CAPECITABINE
     Route: 048
     Dates: start: 20210501, end: 20210514
  3. BEVACIZUMAB [Suspect]
     Active Substance: BEVACIZUMAB
     Indication: Colon cancer
     Route: 065
     Dates: start: 20210226
  4. BEVACIZUMAB [Suspect]
     Active Substance: BEVACIZUMAB
     Route: 041
     Dates: start: 20210501, end: 20210501
  5. SODIUM CHLORIDE [Concomitant]
     Active Substance: SODIUM CHLORIDE
     Indication: Colon cancer
     Route: 041
     Dates: start: 20210501, end: 20210501
  6. OXALIPLATIN [Concomitant]
     Active Substance: OXALIPLATIN
     Indication: Colon cancer
     Dates: start: 20210226
  7. OXALIPLATIN [Concomitant]
     Active Substance: OXALIPLATIN
     Route: 041
     Dates: start: 20210501, end: 20210501
  8. DEXTROSE [Concomitant]
     Active Substance: DEXTROSE
     Indication: Colon cancer
     Route: 041
     Dates: start: 20210501, end: 20210501

REACTIONS (2)
  - Neutrophil count decreased [Recovered/Resolved]
  - White blood cell count decreased [Recovered/Resolved]

NARRATIVE: CASE EVENT DATE: 20210521
